FAERS Safety Report 7361403-9 (Version None)
Quarter: 2011Q1

REPORT INFORMATION
  Report Type: 
  Country: None (occurrence: None)
  Receive Date: 20110318
  Receipt Date: 20110311
  Transmission Date: 20110831
  Serious: Yes (Hospitalization)
  Sender: FDA-Public Use
  Company Number: US-ELI_LILLY_AND_COMPANY-US201103004244

PATIENT
  Age: 18 Year
  Sex: Female

DRUGS (1)
  1. FORTEO [Suspect]
     Indication: HYPOPARATHYROIDISM
     Dosage: UNK, DAILY (1/D)
     Route: 065
     Dates: start: 20090701

REACTIONS (4)
  - ASTHENIA [None]
  - DIZZINESS [None]
  - OFF LABEL USE [None]
  - HYPOPARATHYROIDISM [None]
